FAERS Safety Report 9416121 (Version 1)
Quarter: 2013Q3

REPORT INFORMATION
  Report Type: Spontaneous
  Country: US (occurrence: None)
  Receive Date: 20130717
  Receipt Date: 20130717
  Transmission Date: 20140515
  Serious: Yes (Hospitalization)
  Sender: FDA-Public Use
  Company Number: 2013-0773

PATIENT
  Age: 47 Year
  Sex: Male

DRUGS (1)
  1. KYPROLIS (CARFILZOMIB) (INJECTION FOR INFUSION) (CARFILZOMIB) [Suspect]
     Indication: PLASMA CELL MYELOMA
     Route: 042
     Dates: start: 20130424

REACTIONS (10)
  - Fatigue [None]
  - Urticaria [None]
  - Rash [None]
  - Pruritus [None]
  - Diarrhoea [None]
  - Dyspnoea [None]
  - Anaemia [None]
  - Chest pain [None]
  - Pulmonary thrombosis [None]
  - Back pain [None]
